FAERS Safety Report 16394408 (Version 4)
Quarter: 2019Q3

REPORT INFORMATION
  Report Type: Report from Study
  Country: US (occurrence: US)
  Receive Date: 20190605
  Receipt Date: 20190903
  Transmission Date: 20191004
  Serious: Yes (Other)
  Sender: FDA-Public Use
  Company Number: US-JNJFOC-20180912430

PATIENT
  Age: 69 Year
  Sex: Male

DRUGS (42)
  1. BUPROPION. [Concomitant]
     Active Substance: BUPROPION
  2. PROVIGIL [Concomitant]
     Active Substance: MODAFINIL
  3. MULTIVITAMINS [Concomitant]
     Active Substance: VITAMINS
  4. OXYBUTYNIN. [Concomitant]
     Active Substance: OXYBUTYNIN CHLORIDE
  5. PAXIL [Concomitant]
     Active Substance: PAROXETINE HYDROCHLORIDE
  6. INFLUENZA VACCINE [Concomitant]
     Active Substance: INFLUENZA VIRUS VACCINE
  7. RESCUE [Concomitant]
     Indication: ASTHMA
  8. BUPROPION. [Concomitant]
     Active Substance: BUPROPION
  9. PSYLLIUM FIBRE [Concomitant]
  10. FISH OIL [Concomitant]
     Active Substance: FISH OIL
  11. FLONASE [Concomitant]
     Active Substance: FLUTICASONE PROPIONATE
  12. FUROSEMIDE. [Concomitant]
     Active Substance: FUROSEMIDE
  13. FEXOFENADINE [Concomitant]
     Active Substance: FEXOFENADINE HYDROCHLORIDE
  14. PROVIGIL [Concomitant]
     Active Substance: MODAFINIL
     Dosage: 200MG IN AM AND 100MG IN EVENING
  15. ESOMEPRAZOLE. [Concomitant]
     Active Substance: ESOMEPRAZOLE MAGNESIUM
  16. ALLEGRA [Concomitant]
     Active Substance: FEXOFENADINE HYDROCHLORIDE
  17. DOCUSATE [Concomitant]
     Active Substance: DOCUSATE
  18. CASEIN. [Concomitant]
     Active Substance: CASEIN
  19. IRON [Concomitant]
     Active Substance: IRON
  20. CAPSAICIN. [Concomitant]
     Active Substance: CAPSAICIN
     Route: 061
  21. DOCUSATE SODIUM. [Concomitant]
     Active Substance: DOCUSATE SODIUM
  22. FLUTICASONE PROPIONATE. [Concomitant]
     Active Substance: FLUTICASONE PROPIONATE
  23. IMBRUVICA [Suspect]
     Active Substance: IBRUTINIB
     Indication: WALDENSTROM^S MACROGLOBULINAEMIA
     Dosage: 420 MG QD
     Route: 048
     Dates: start: 20180401
  24. CLOBETASOL [Concomitant]
     Active Substance: CLOBETASOL
  25. ALBUTEROL. [Concomitant]
     Active Substance: ALBUTEROL
  26. MELATONIN [Concomitant]
     Active Substance: MELATONIN
  27. SODIUM CHLORIDE. [Concomitant]
     Active Substance: SODIUM CHLORIDE
  28. SINUS RINSE [Concomitant]
     Active Substance: SODIUM BICARBONATE\SODIUM CHLORIDE
  29. LISTERINE                          /00178701/ [Concomitant]
  30. ALFUZOSINE [Concomitant]
     Active Substance: ALFUZOSIN HYDROCHLORIDE
  31. CALLEX [Concomitant]
  32. PARAFFIN W/PROTEASE/SUBTILISIN [Concomitant]
  33. AFRIN [Concomitant]
     Active Substance: OXYMETAZOLINE
  34. FERROUS SULFATE. [Concomitant]
     Active Substance: FERROUS SULFATE
  35. PLANTAGO OVATA [Concomitant]
     Active Substance: HERBALS\PLANTAGO OVATA LEAF
  36. VITAMIN C [Concomitant]
     Active Substance: ASCORBIC ACID
  37. CAPZASIN HP ARTHRITIS PAIN RELIEF [Concomitant]
     Active Substance: CAPSAICIN
  38. BACITRACIN W/NEOMYCIN/POLYMYXIN B [Concomitant]
     Active Substance: BACITRACIN\NEOMYCIN\POLYMYXIN B
  39. CLOBETAZOL [Concomitant]
     Active Substance: CLOBETASOL PROPIONATE
     Route: 061
  40. LISTERINE                          /00178701/ [Concomitant]
  41. PAROXETINE. [Concomitant]
     Active Substance: PAROXETINE
  42. CORTISONE [Concomitant]
     Active Substance: CORTISONE
     Indication: WOUND
     Route: 061

REACTIONS (25)
  - Psychotherapy [Unknown]
  - Ear pruritus [Not Recovered/Not Resolved]
  - Hypoaesthesia [Not Recovered/Not Resolved]
  - Stress [Not Recovered/Not Resolved]
  - Fatigue [Not Recovered/Not Resolved]
  - Pruritus generalised [Unknown]
  - Anxiety [Not Recovered/Not Resolved]
  - Eustachian tube obstruction [Unknown]
  - Fall [Recovered/Resolved]
  - Skin ulcer [Recovering/Resolving]
  - Muscle spasms [Not Recovered/Not Resolved]
  - Skin atrophy [Not Recovered/Not Resolved]
  - Somnolence [Not Recovered/Not Resolved]
  - Psychiatric symptom [Not Recovered/Not Resolved]
  - Gastrooesophageal reflux disease [Not Recovered/Not Resolved]
  - Road traffic accident [Recovered/Resolved]
  - Psoriasis [Recovering/Resolving]
  - Product dose omission [Unknown]
  - Muscle rupture [Recovered/Resolved]
  - Increased tendency to bruise [Not Recovered/Not Resolved]
  - Paronychia [Recovered/Resolved]
  - Haemorrhagic diathesis [Not Recovered/Not Resolved]
  - Constipation [Recovered/Resolved]
  - Localised infection [Recovered/Resolved]
  - Asthenia [Not Recovered/Not Resolved]

NARRATIVE: CASE EVENT DATE: 2018
